FAERS Safety Report 10358948 (Version 1)
Quarter: 2014Q3

REPORT INFORMATION
  Report Type: Spontaneous
  Country: US (occurrence: US)
  Receive Date: 20140804
  Receipt Date: 20140804
  Transmission Date: 20150326
  Serious: No
  Sender: FDA-Public Use
  Company Number: US-BIOGENIDEC-2014BI073776

PATIENT
  Sex: Female

DRUGS (1)
  1. AVONEX [Suspect]
     Active Substance: INTERFERON BETA-1A
     Indication: MULTIPLE SCLEROSIS
     Route: 030
     Dates: start: 20070828

REACTIONS (9)
  - Irritability [Unknown]
  - Anger [Unknown]
  - Memory impairment [Unknown]
  - Injury [Unknown]
  - Musculoskeletal disorder [Unknown]
  - Temperature intolerance [Unknown]
  - Blood pressure increased [Unknown]
  - Agitation [Unknown]
  - Emotional disorder [Unknown]
